FAERS Safety Report 5223018-8 (Version None)
Quarter: 2007Q1

REPORT INFORMATION
  Report Type: 
  Country: None (occurrence: None)
  Receive Date: 20070129
  Receipt Date: 20070117
  Transmission Date: 20070707
  Serious: Yes (Hospitalization, Other)
  Sender: FDA-Public Use
  Company Number: JP-PFIZER INC-2006144584

PATIENT
  Sex: Female
  Weight: 51 kg

DRUGS (4)
  1. EPIRUBICIN HYDROCHLORIDE SOLUTION, STERILE [Suspect]
     Indication: BREAST CANCER
     Dosage: DAILY DOSE:39MG-FREQ:DAILY
     Dates: start: 20050523, end: 20050711
  2. TAXOTERE [Suspect]
     Indication: BREAST CANCER
     Dosage: DAILY DOSE:39MG-FREQ:DAILY
     Route: 042
     Dates: start: 20050523, end: 20050711
  3. UFT [Suspect]
     Indication: BREAST CANCER
     Route: 048
     Dates: start: 20050509, end: 20050719
  4. TAMOXIFEN CITRATE [Suspect]
     Indication: BREAST CANCER
     Route: 048
     Dates: start: 20050509, end: 20050719

REACTIONS (5)
  - HEPATIC FUNCTION ABNORMAL [None]
  - INTERSTITIAL LUNG DISEASE [None]
  - PYREXIA [None]
  - VASCULITIS [None]
  - WHITE BLOOD CELL COUNT DECREASED [None]
